FAERS Safety Report 17323692 (Version 2)
Quarter: 2020Q3

REPORT INFORMATION
  Report Type: Spontaneous
  Country: NL (occurrence: NL)
  Receive Date: 20200127
  Receipt Date: 20200908
  Transmission Date: 20201102
  Serious: Yes (Other)
  Sender: FDA-Public Use
  Company Number: NL-TEVA-2020-NL-1174042

PATIENT
  Age: 45 Year
  Sex: Female
  Weight: 75 kg

DRUGS (8)
  1. TOPIRAMAAT 25 MG [Concomitant]
     Active Substance: TOPIRAMATE
  2. HYDROCORTISON TABLET 20MG / HYDROCORTISON TIOFARMA TABLET 20MGHYDROCOR [Suspect]
     Active Substance: HYDROCORTISONE
     Indication: ADRENAL INSUFFICIENCY
     Dosage: 20 MG (MILLIGRAMS), HALF TABLET,
     Route: 065
     Dates: start: 20191211
  3. FENTANYL PLEISTER 25UG/UUR (GENERIEK+DUROGESIC) / BRAND NAME NOT SPECI [Concomitant]
  4. ENTOCORT [Concomitant]
     Active Substance: BUDESONIDE
  5. ZOUTEN PDR V DRANK (MOVIC/MOLAX/LAXT/GEN) / MOVICOLON POEDER [Concomitant]
  6. OMEPRAZOL CAPSULE MSR 20MG / MAAGZUURREMMER OMEPRAZOL HTP CAPSULE MSR [Concomitant]
     Active Substance: OMEPRAZOLE
  7. HYDROXOCOBALAMINE INJVLST 500UG/ML / HYDROCOBAMINE INJVLST 500MCG/ML A [Concomitant]
     Active Substance: HYDROXOCOBALAMIN HYDROCHLORIDE
  8. TOPIRAMAAT TABLET OMHULD 100MG / TOPAMAX TABLET OMHULD 100MG. [Concomitant]
     Active Substance: TOPIRAMATE

REACTIONS (4)
  - Product quality issue [Not Recovered/Not Resolved]
  - Therapeutic response unexpected [Not Recovered/Not Resolved]
  - Adrenal insufficiency [Not Recovered/Not Resolved]
  - Wrong technique in product usage process [Not Recovered/Not Resolved]

NARRATIVE: CASE EVENT DATE: 20191211
